FAERS Safety Report 19289520 (Version 6)
Quarter: 2022Q1

REPORT INFORMATION
  Report Type: Report from Study
  Country: US (occurrence: US)
  Receive Date: 20210521
  Receipt Date: 20220127
  Transmission Date: 20220424
  Serious: Yes (Other)
  Sender: FDA-Public Use
  Company Number: NVSC2021US107063

PATIENT
  Sex: Male

DRUGS (1)
  1. COSENTYX [Suspect]
     Active Substance: SECUKINUMAB
     Indication: Psoriasis
     Dosage: 300 MG, QMO
     Route: 058
     Dates: start: 20210305

REACTIONS (4)
  - Crohn^s disease [Unknown]
  - Skin exfoliation [Not Recovered/Not Resolved]
  - Psoriasis [Unknown]
  - Therapeutic product effect decreased [Not Recovered/Not Resolved]
